FAERS Safety Report 4953746-0 (Version None)
Quarter: 2006Q1

REPORT INFORMATION
  Report Type: 
  Country: None (occurrence: None)
  Receive Date: 20060327
  Receipt Date: 20060316
  Transmission Date: 20060701
  Serious: Yes (Hospitalization, Other)
  Sender: FDA-Public Use
  Company Number: NO-JNJFOC-20060301890

PATIENT
  Sex: Male

DRUGS (7)
  1. REMICADE [Suspect]
     Indication: CROHN'S DISEASE
     Route: 042
  2. REMICADE [Suspect]
     Dosage: 5 INFUSIONS
     Route: 042
  3. METHOTREXATE [Concomitant]
     Indication: CROHN'S DISEASE
     Route: 058
  4. METHOTREXATE [Concomitant]
     Route: 058
  5. SOLU-CORTEF [Concomitant]
  6. POLARAMINE [Concomitant]
  7. PREDNISOLONE [Concomitant]

REACTIONS (8)
  - COLD SWEAT [None]
  - DEPRESSED LEVEL OF CONSCIOUSNESS [None]
  - DIZZINESS [None]
  - HEADACHE [None]
  - INFUSION RELATED REACTION [None]
  - NAUSEA [None]
  - THROAT TIGHTNESS [None]
  - VOMITING [None]
